FAERS Safety Report 19283757 (Version 1)
Quarter: 2021Q2

REPORT INFORMATION
  Report Type: Spontaneous
  Country: GB (occurrence: GB)
  Receive Date: 20210521
  Receipt Date: 20210521
  Transmission Date: 20210717
  Serious: Yes (Other)
  Sender: FDA-Public Use
  Company Number: GB-PFIZER INC-2021530051

PATIENT
  Age: 17 Year
  Sex: Female
  Weight: 70 kg

DRUGS (3)
  1. MEDROXYPROGESTERONE ACETATE. [Suspect]
     Active Substance: MEDROXYPROGESTERONE ACETATE
     Indication: CONTRACEPTION
     Dosage: USE AS DIRECTED
     Route: 030
     Dates: start: 20210506
  2. CHLORPHENAMINE [Concomitant]
     Active Substance: CHLORPHENIRAMINE MALEATE
     Dosage: TAKE ONE EVERY 4?6 HRS
     Dates: start: 20210506
  3. HYDROCORTISONE. [Concomitant]
     Active Substance: HYDROCORTISONE
     Dosage: APPLY AS DIRECTED
     Dates: start: 20210415

REACTIONS (7)
  - Nausea [Recovered/Resolved]
  - Flushing [Recovered/Resolved]
  - Nasal congestion [Recovering/Resolving]
  - Rash pruritic [Recovering/Resolving]
  - Eye swelling [Recovered/Resolved]
  - Paraesthesia oral [Recovered/Resolved]
  - Peripheral swelling [Recovered/Resolved]

NARRATIVE: CASE EVENT DATE: 20210507
